FAERS Safety Report 6399194-0 (Version None)
Quarter: 2009Q4

REPORT INFORMATION
  Report Type: 
  Country: None (occurrence: None)
  Receive Date: 20091008
  Receipt Date: 20090928
  Transmission Date: 20100525
  Serious: Yes (Other)
  Sender: FDA-Public Use
  Company Number: GXKR2009AR10745

PATIENT
  Age: 71 Year
  Sex: Female
  Weight: 65 kg

DRUGS (3)
  1. AMIODARONE HCL [Suspect]
     Indication: ATRIAL FIBRILLATION
     Dosage: 300 MG, BOLUS; 900 MG/DAY, INFUSION
  2. CLARITHROMYCIN [Suspect]
     Indication: PNEUMONIA
     Dosage: 1 G/DAY
  3. CIPROFLOXACIN [Suspect]
     Indication: PNEUMONIA
     Dosage: 1 G/DAY

REACTIONS (7)
  - ATRIAL FIBRILLATION [None]
  - BRADYCARDIA [None]
  - DRUG INTERACTION [None]
  - ELECTROCARDIOGRAM QT PROLONGED [None]
  - HAEMODYNAMIC INSTABILITY [None]
  - PNEUMONIA [None]
  - VENTRICULAR TACHYCARDIA [None]
